FAERS Safety Report 9353294 (Version 1)
Quarter: 2013Q2

REPORT INFORMATION
  Report Type: Spontaneous
  Country: US (occurrence: US)
  Receive Date: 20130618
  Receipt Date: 20130618
  Transmission Date: 20140414
  Serious: Yes (Other)
  Sender: FDA-Public Use
  Company Number: US-BAYER-2013-074152

PATIENT
  Age: 42 Year
  Sex: Female

DRUGS (17)
  1. YAZ [Suspect]
  2. YASMIN [Suspect]
  3. OCELLA [Suspect]
  4. AZITHROMYCIN [Concomitant]
  5. SYNTOROL [Concomitant]
  6. VERAMYST [Concomitant]
     Dosage: USE 1-2 SQUIRTSIN EACH NOSTRIL DAILY
  7. MULTIVITAMINS [Concomitant]
  8. FLUCONAZOLE [Concomitant]
  9. PAROXETINE [Concomitant]
  10. CLONAZEPAM [Concomitant]
     Dosage: 2 MG, BID
     Route: 048
  11. ERGOCALCIFEROL [Concomitant]
     Dosage: 2 TABLETS EVERY 48 HOURS
     Route: 048
  12. LEVOTHYROXINE [Concomitant]
     Dosage: 0.05 MG, QD
     Route: 048
  13. THYROID [Concomitant]
     Dosage: 0.25 UNK, UNK
  14. OXYCODONE [Concomitant]
  15. METRONIDAZOLE [Concomitant]
     Dosage: 500 MG, TID
     Route: 048
  16. CYCLOBENZAPRINE [Concomitant]
     Dosage: TAKE 1 OR 2 TABLETS TWICE DAILY
     Route: 048
  17. TRAMADOL [Concomitant]
     Dosage: 1 TABLET EVERY 6 HOURS
     Route: 048

REACTIONS (2)
  - Deep vein thrombosis [None]
  - Cholelithiasis [None]
